FAERS Safety Report 15313592 (Version 1)
Quarter: 2018Q3

REPORT INFORMATION
  Report Type: Spontaneous
  Country: US (occurrence: US)
  Receive Date: 20180824
  Receipt Date: 20180824
  Transmission Date: 20181010
  Serious: No
  Sender: FDA-Public Use
  Company Number: US-BRISTOL-MYERS SQUIBB COMPANY-BMS-2018-078022

PATIENT

DRUGS (3)
  1. SALSALATE. [Suspect]
     Active Substance: SALSALATE
     Indication: BACK PAIN
     Route: 065
  2. SALSALATE. [Suspect]
     Active Substance: SALSALATE
     Indication: ARTHRALGIA
     Dosage: 3 G, QD
     Route: 065
  3. WARFARIN SODIUM. [Suspect]
     Active Substance: WARFARIN SODIUM
     Indication: PRODUCT USED FOR UNKNOWN INDICATION
     Route: 065

REACTIONS (3)
  - International normalised ratio increased [Unknown]
  - Labelled drug-drug interaction medication error [Unknown]
  - Contusion [Unknown]
